FAERS Safety Report 14963302 (Version 1)
Quarter: 2018Q2

REPORT INFORMATION
  Report Type: Spontaneous
  Country: US (occurrence: US)
  Receive Date: 20180601
  Receipt Date: 20180601
  Transmission Date: 20180711
  Serious: Yes (Hospitalization)
  Sender: FDA-Public Use
  Company Number: US-BAYER-2018-102173

PATIENT
  Age: 18 Year
  Sex: Male

DRUGS (2)
  1. ACETYLSALICYLIC ACID (} 100 MG) [Suspect]
     Active Substance: ASPIRIN
     Dosage: 325 MG, UNK
  2. ENOXAPARIN [Suspect]
     Active Substance: ENOXAPARIN
     Dosage: 30 MG, BID

REACTIONS (1)
  - Subdural haematoma [None]
